FAERS Safety Report 8406970-9 (Version None)
Quarter: 2012Q2

REPORT INFORMATION
  Report Type: 
  Country: None (occurrence: None)
  Receive Date: 20120604
  Receipt Date: 20120601
  Transmission Date: 20120825
  Serious: Yes (Other)
  Sender: FDA-Public Use
  Company Number: US-BAYER-RDEA119103100028

PATIENT
  Age: 59 Year
  Sex: Male
  Weight: 80.272 kg

DRUGS (10)
  1. ACTOS [Concomitant]
     Indication: TYPE 2 DIABETES MELLITUS
     Dosage: 30 MG, QD
  2. DIOVAN HCT [Concomitant]
     Indication: HYPERTENSION
     Dosage: 80-12.5 MG, QD
  3. SORAFENIB (RAF KINASE INHIBITOR) [Suspect]
     Indication: PROSTATE CANCER
     Dosage: 400 MG, BID
     Route: 048
     Dates: start: 20091203, end: 20100118
  4. GLIPIZIDE W/METFORMIN [Concomitant]
     Indication: TYPE 2 DIABETES MELLITUS
     Dosage: 5 MG - 500 MG, QD
  5. SORAFENIB (RAF KINASE INHIBITOR) [Suspect]
     Dosage: 200 MG, BID
     Route: 048
     Dates: start: 20100218, end: 20100318
  6. AMLODIPINE [Concomitant]
     Indication: HYPERTENSION
     Dosage: 5 MG, QD
  7. PRAVASTATIN [Concomitant]
     Indication: HYPERLIPIDAEMIA
     Dosage: 20 MG, QD
  8. MEK INHIBITOR (DIHYDROXYPROP-DIFLU-METHOXYPHEN-CYCLOPROPA-SULFAMI) [Suspect]
     Indication: PROSTATE CANCER
     Dosage: 30 MG, BID
     Route: 048
     Dates: start: 20091130, end: 20100118
  9. MEK INHIBITOR (DIHYDROXYPROP-DIFLU-METHOXYPHEN-CYCLOPROPA-SULFAMI) [Suspect]
     Dosage: 10 MG, BID
     Route: 048
     Dates: start: 20100211, end: 20100310
  10. MEK INHIBITOR (DIHYDROXYPROP-DIFLU-METHOXYPHEN-CYCLOPROPA-SULFAMI) [Suspect]
     Dosage: 5 MG, BID
     Route: 048
     Dates: start: 20100311, end: 20100318

REACTIONS (2)
  - LEFT VENTRICULAR DYSFUNCTION [None]
  - DYSPNOEA [None]
